FAERS Safety Report 8929221 (Version 1)
Quarter: 2012Q4

REPORT INFORMATION
  Report Type: Spontaneous
  Country: US (occurrence: None)
  Receive Date: 20121126
  Receipt Date: 20121126
  Transmission Date: 20130627
  Serious: Yes (Life-Threatening)
  Sender: FDA-Public Use
  Company Number: None

PATIENT
  Age: 66 Year
  Sex: Male
  Weight: 176 kg

DRUGS (1)
  1. IRBESARTAN-TEVACE [Suspect]
     Indication: BLOOD PRESSURE HIGH
     Dosage: 1a day
     Dates: start: 20120515

REACTIONS (3)
  - Dizziness [None]
  - Loss of consciousness [None]
  - Product substitution issue [None]
